FAERS Safety Report 5680563-9 (Version None)
Quarter: 2008Q1

REPORT INFORMATION
  Report Type: 
  Country: None (occurrence: None)
  Receive Date: 20080326
  Receipt Date: 20080319
  Transmission Date: 20080703
  Serious: Yes (Hospitalization)
  Sender: FDA-Public Use
  Company Number: BR-ABBOTT-08P-020-0443498-00

PATIENT
  Sex: Female
  Weight: 56 kg

DRUGS (7)
  1. HUMIRA [Suspect]
     Indication: RHEUMATOID ARTHRITIS
     Route: 058
     Dates: start: 20060501
  2. CHLORTHALIDONE [Concomitant]
     Indication: HYPERTENSION
     Route: 048
  3. RISEDRONATE SODIUM [Concomitant]
     Indication: OSTEOPOROSIS
  4. ERGOCALCIFEROL, CALCIUM PHOSPHATE, CYANOCOBALAMIN, SODIUM FLUORIDE, NU [Concomitant]
     Indication: OSTEOPOROSIS
  5. METHOTREXATE [Concomitant]
     Indication: RHEUMATOID ARTHRITIS
     Route: 048
  6. MAGISTRAL FORMULA WITH FAMOTIDINE, NAPROXEN, PREDNISOLONE AND FOLIC AC [Concomitant]
     Indication: RHEUMATOID ARTHRITIS
     Dates: start: 20071201
  7. CEPHALEXIN [Concomitant]
     Indication: INFECTION PROPHYLAXIS
     Route: 048

REACTIONS (2)
  - BUNION [None]
  - PAIN [None]
